FAERS Safety Report 4428391-6 (Version None)
Quarter: 2004Q3

REPORT INFORMATION
  Report Type: 
  Country: None (occurrence: None)
  Receive Date: 20040813
  Receipt Date: 20040804
  Transmission Date: 20050211
  Serious: Yes (Other)
  Sender: FDA-Public Use
  Company Number: 2004227009PL

PATIENT
  Age: 54 Year
  Sex: Female

DRUGS (5)
  1. XANAX [Suspect]
     Indication: DEPRESSION
     Dosage: 0.5 MG, ORAL
     Route: 048
     Dates: start: 20021120, end: 20021209
  2. CARBOPLATIN [Suspect]
     Indication: OVARIAN CANCER
     Dosage: 650 MG, CYCLIC, IV
     Route: 042
     Dates: start: 20021008, end: 20021119
  3. PACLITAXEL [Suspect]
     Indication: OVARIAN CANCER
     Dosage: 260 MG, CYCLIC , IV
     Route: 042
     Dates: start: 20021008, end: 20021119
  4. COAXIL(TABLET) [Suspect]
     Indication: DEPRESSION
     Dosage: 12.5 MG/DAY, ORAL
     Route: 048
     Dates: start: 20021120, end: 20021209
  5. INTERFERON GAMMA-1B(INTERFERON GAMMA) [Concomitant]

REACTIONS (1)
  - NEUTROPENIA [None]
